FAERS Safety Report 8319650-5 (Version None)
Quarter: 2012Q2

REPORT INFORMATION
  Report Type: 
  Country: None (occurrence: None)
  Receive Date: 20120427
  Receipt Date: 20120416
  Transmission Date: 20120825
  Serious: Yes (Death)
  Sender: FDA-Public Use
  Company Number: US-JNJFOC-20120409244

PATIENT
  Age: 21 Year
  Sex: Male

DRUGS (9)
  1. CHLORDIAZEPOXIDE [Suspect]
     Indication: ACCIDENTAL EXPOSURE
     Route: 065
  2. BENZOYLECGONINE [Suspect]
     Indication: ACCIDENTAL EXPOSURE
     Route: 065
  3. NORDIAZEPAM [Suspect]
     Indication: ACCIDENTAL EXPOSURE
     Route: 065
  4. BENZODIAZEPINES NOS [Suspect]
     Indication: ACCIDENTAL EXPOSURE
     Route: 065
  5. DIPHENHYDRAMINE HCL [Suspect]
     Indication: ACCIDENTAL EXPOSURE
     Route: 065
  6. UNSPECIFIED NARCOTIC [Suspect]
     Indication: ACCIDENTAL EXPOSURE
     Route: 065
  7. HEROIN [Suspect]
     Indication: ACCIDENTAL EXPOSURE
     Route: 065
  8. MORPHINE [Suspect]
     Indication: ACCIDENTAL EXPOSURE
     Route: 065
  9. COCAINE [Suspect]
     Indication: ACCIDENTAL EXPOSURE
     Route: 065

REACTIONS (1)
  - TOXICITY TO VARIOUS AGENTS [None]
